FAERS Safety Report 24383213 (Version 2)
Quarter: 2024Q4

REPORT INFORMATION
  Report Type: Spontaneous
  Country: US (occurrence: US)
  Receive Date: 20241001
  Receipt Date: 20241119
  Transmission Date: 20250115
  Serious: No
  Sender: CATALYST PHARMA
  Company Number: US-CATALYST PHARMACEUTICALS-US-CATA-24-00537

PATIENT
  Sex: Male
  Weight: 54.422 kg

DRUGS (14)
  1. AGAMREE [Suspect]
     Active Substance: VAMOROLONE
     Indication: Duchenne muscular dystrophy
     Dosage: 7.5 ML DAILY
     Route: 048
     Dates: start: 20240503, end: 20240609
  2. AGAMREE [Suspect]
     Active Substance: VAMOROLONE
     Dosage: 3.5 ML DAILY
     Route: 048
     Dates: start: 20240609, end: 20240610
  3. AGAMREE [Suspect]
     Active Substance: VAMOROLONE
     Dosage: 7.5 ML DAILY
     Route: 048
     Dates: start: 202406
  4. ALBUTEROL [Concomitant]
     Active Substance: ALBUTEROL
     Indication: Seasonal allergy
     Dosage: ONE PUFF EVERY SIX HOURS
     Route: 055
  5. CLARITIN [Concomitant]
     Active Substance: LORATADINE
     Indication: Hypersensitivity
     Dosage: 5 MG DAILY
     Route: 065
  6. D-VI-SOL [Concomitant]
     Indication: Hypovitaminosis
     Dosage: 3 DROPS PER DAY
     Route: 048
  7. FAMOTIDINE [Concomitant]
     Active Substance: FAMOTIDINE
     Indication: Gastrointestinal disorder prophylaxis
     Dosage: 20 MG 1X A DAY
     Route: 065
  8. HYLAND^S 4 KIDS COLD^N COUGH [Concomitant]
     Indication: Nasopharyngitis
     Dosage: 1 TABLESPOON AS NEEDED
     Route: 065
  9. LISINOPRIL [Concomitant]
     Active Substance: LISINOPRIL
     Indication: Cardiac disorder
     Dosage: 5 MG 1X A DAY
     Route: 065
  10. LISINOPRIL [Concomitant]
     Active Substance: LISINOPRIL
     Dosage: 10 MG DAILY
     Route: 065
  11. MULTIVITAMIN GUMMIES FOR CHILDREN [Concomitant]
     Indication: Hypovitaminosis
     Dosage: 2 GUMMIES 1X DAY
     Route: 065
  12. TUMS [Concomitant]
     Active Substance: CALCIUM CARBONATE
     Indication: Calcium deficiency
     Dosage: 500 MG 1X A DAY
     Route: 065
  13. TYLENOL FOR CHILDREN [Concomitant]
     Indication: Pyrexia
     Dosage: 160 MG PER 5 ML AS NEEDED
     Route: 048
  14. ZARBEE^S COUGH MEDICATION [Concomitant]
     Indication: Cough
     Dosage: AS NEEDED
     Route: 065

REACTIONS (3)
  - Hyperactive pharyngeal reflex [Unknown]
  - Product physical issue [Unknown]
  - Weight increased [Not Recovered/Not Resolved]

NARRATIVE: CASE EVENT DATE: 20240101
